FAERS Safety Report 18468324 (Version 1)
Quarter: 2020Q4

REPORT INFORMATION
  Report Type: Spontaneous
  Country: US (occurrence: US)
  Receive Date: 20201104
  Receipt Date: 20201104
  Transmission Date: 20210114
  Serious: No
  Sender: FDA-Public Use
  Company Number: None

PATIENT
  Age: 38 Year
  Sex: Male
  Weight: 83.25 kg

DRUGS (4)
  1. CLONAZEPAM. [Concomitant]
     Active Substance: CLONAZEPAM
  2. BUPROPION. [Concomitant]
     Active Substance: BUPROPION
  3. PAROXETINE. [Concomitant]
     Active Substance: PAROXETINE
  4. BUPROPION XL 150MG, 300MG TABLETS [Suspect]
     Active Substance: BUPROPION
     Indication: MAJOR DEPRESSION
     Dosage: ?          QUANTITY:1 TABLET(S);?
     Route: 048
     Dates: start: 20201029, end: 20201104

REACTIONS (6)
  - Heart rate increased [None]
  - Decreased appetite [None]
  - Insomnia [None]
  - Dizziness [None]
  - Product formulation issue [None]
  - Feeling abnormal [None]

NARRATIVE: CASE EVENT DATE: 20201104
